FAERS Safety Report 7078153-9 (Version None)
Quarter: 2010Q4

REPORT INFORMATION
  Report Type: 
  Country: None (occurrence: None)
  Receive Date: 20101102
  Receipt Date: 20101025
  Transmission Date: 20110411
  Serious: Yes (Death, Life-Threatening, Hospitalization)
  Sender: FDA-Public Use
  Company Number: GB-TEVA-239139ISR

PATIENT
  Sex: Male

DRUGS (30)
  1. PREDNISOLONE [Suspect]
     Indication: PROSTATE CANCER METASTATIC
     Route: 048
     Dates: start: 20090430
  2. ABIRATERONE ACETATE / PLACEBO - BLINDED [Suspect]
     Indication: PROSTATE CANCER METASTATIC
     Route: 048
     Dates: start: 20090430, end: 20091106
  3. TRAMADOL HYDROCHLORIDE [Concomitant]
     Route: 048
     Dates: start: 20031127
  4. DICLOFENAC SODIUM [Concomitant]
     Indication: CANCER PAIN
     Route: 048
     Dates: start: 20031127
  5. DICLOFENAC SODIUM [Concomitant]
     Route: 048
     Dates: start: 20071201
  6. PARACETAMOL [Concomitant]
     Indication: CANCER PAIN
     Route: 048
     Dates: start: 20031127
  7. SELENIUM [Concomitant]
     Indication: PROPHYLAXIS
     Route: 048
     Dates: start: 20090101
  8. INOSITOL [Concomitant]
     Indication: PROPHYLAXIS
     Route: 048
     Dates: start: 20090101
  9. LEKOVIT CA [Concomitant]
     Indication: MINERAL SUPPLEMENTATION
     Route: 048
     Dates: start: 20070822
  10. CHLORPHENIRAMINE MALEATE [Concomitant]
     Indication: PRURITUS
     Route: 048
     Dates: start: 20090524
  11. MORPHINE SULFATE [Concomitant]
     Indication: MUSCLE SPASMS
     Route: 048
     Dates: start: 20090528
  12. MORPHINE SULFATE [Concomitant]
     Indication: PAIN IN EXTREMITY
  13. METOCLOPRAMIDE [Concomitant]
     Indication: PROPHYLAXIS OF NAUSEA AND VOMITING
     Route: 048
     Dates: start: 20090528
  14. METOCLOPRAMIDE [Concomitant]
     Indication: PROPHYLAXIS
  15. METOCLOPRAMIDE [Concomitant]
     Indication: PAIN PROPHYLAXIS
  16. PANADEINE CO [Concomitant]
     Indication: CANCER PAIN
     Route: 048
     Dates: start: 20090501
  17. PANADEINE CO [Concomitant]
     Route: 048
     Dates: start: 20090917
  18. ZOLEDRONIC ACID [Concomitant]
     Indication: PROPHYLAXIS
     Route: 042
     Dates: start: 20070822
  19. GOSERELIN [Concomitant]
     Indication: HORMONE THERAPY
     Route: 058
     Dates: start: 20031101
  20. GOSERELIN [Concomitant]
     Route: 058
     Dates: start: 20090430
  21. TRIAMTERENE [Concomitant]
     Indication: HYPERTENSION
     Route: 048
     Dates: start: 20070401
  22. HYDROCHLOROTHIAZIDE [Concomitant]
     Indication: HYPERTENSION
     Route: 048
     Dates: start: 20080601
  23. TETRAZEPAM [Concomitant]
     Indication: PAIN
     Route: 048
     Dates: start: 20090401
  24. AMLODIPINE [Concomitant]
     Indication: BLOOD PRESSURE
     Route: 048
     Dates: start: 20091111
  25. PIPERACILLIN W/TAZOBACTAM [Concomitant]
     Indication: INFECTION
     Route: 042
     Dates: start: 20091108
  26. PIPERACILLIN W/TAZOBACTAM [Concomitant]
     Route: 042
  27. CLARITHROMYCIN [Concomitant]
     Indication: INFECTION
     Route: 048
     Dates: start: 20091108
  28. BLOOD TRANSFUSION, AUXILIARY PRODUCTS [Concomitant]
     Indication: BONE MARROW FAILURE
     Route: 042
     Dates: start: 20091108
  29. BLOOD TRANSFUSION, AUXILIARY PRODUCTS [Concomitant]
     Indication: HAEMOGLOBIN DECREASED
     Route: 042
     Dates: start: 20091108
  30. BLOOD TRANSFUSION, AUXILIARY PRODUCTS [Concomitant]
     Indication: PLATELET COUNT DECREASED
     Route: 042
     Dates: start: 20091108

REACTIONS (14)
  - CONFUSIONAL STATE [None]
  - DYSPHAGIA [None]
  - ENCEPHALITIS [None]
  - FATIGUE [None]
  - HAEMOGLOBIN DECREASED [None]
  - LYMPHADENOPATHY MEDIASTINAL [None]
  - MALIGNANT NEOPLASM PROGRESSION [None]
  - MEDIASTINAL DISORDER [None]
  - METASTASES TO MENINGES [None]
  - PROSTATE CANCER METASTATIC [None]
  - SEPSIS [None]
  - SUBDURAL EMPYEMA [None]
  - SUBDURAL HAEMATOMA [None]
  - TERMINAL STATE [None]
